FAERS Safety Report 5904891-4 (Version None)
Quarter: 2008Q4

REPORT INFORMATION
  Report Type: 
  Country: None (occurrence: None)
  Receive Date: 20081001
  Receipt Date: 20080926
  Transmission Date: 20090506
  Serious: Yes (Hospitalization)
  Sender: FDA-Public Use
  Company Number: A0750105A

PATIENT
  Age: 2 Year
  Sex: Female
  Weight: 15 kg

DRUGS (1)
  1. AMOXICILLIN + CLAVULANATE POTASSIUM [Suspect]
     Dosage: 3.5ML TWICE PER DAY
     Route: 048
     Dates: start: 20080922

REACTIONS (2)
  - DRUG ADMINISTRATION ERROR [None]
  - MEDICATION ERROR [None]
